FAERS Safety Report 6225055-3 (Version None)
Quarter: 2009Q2

REPORT INFORMATION
  Report Type: 
  Country: None (occurrence: None)
  Receive Date: 20090612
  Receipt Date: 20090406
  Transmission Date: 20091009
  Serious: No
  Sender: FDA-Public Use
  Company Number: US-ABBOTT-09P-163-0566722-00

PATIENT
  Sex: Male
  Weight: 98.064 kg

DRUGS (3)
  1. HUMIRA [Suspect]
     Indication: ANKYLOSING SPONDYLITIS
     Route: 058
     Dates: start: 20090404, end: 20090407
  2. ADVAIR HFA [Concomitant]
     Indication: ASTHMA
     Route: 055
  3. PROAIR HFA [Concomitant]
     Indication: ASTHMA
     Route: 055

REACTIONS (7)
  - DYSPNOEA [None]
  - ERYTHEMA [None]
  - PAIN [None]
  - PRURITUS [None]
  - SWELLING [None]
  - THROAT IRRITATION [None]
  - URTICARIA [None]
